FAERS Safety Report 4963485-8 (Version None)
Quarter: 2006Q2

REPORT INFORMATION
  Report Type: 
  Country: None (occurrence: None)
  Receive Date: 20060404
  Receipt Date: 20060404
  Transmission Date: 20061013
  Serious: Yes (Other)
  Sender: FDA-Public Use
  Company Number: None

PATIENT
  Age: 37 Year
  Sex: Male
  Weight: 68.0396 kg

DRUGS (1)
  1. PRIMATENE MIST [Suspect]
     Dosage: 1 PUFF

REACTIONS (3)
  - ADVERSE DRUG REACTION [None]
  - DYSPNOEA [None]
  - RESPIRATION ABNORMAL [None]
